FAERS Safety Report 5306705-2 (Version None)
Quarter: 2007Q2

REPORT INFORMATION
  Report Type: 
  Country: None (occurrence: None)
  Receive Date: 20070424
  Receipt Date: 20070417
  Transmission Date: 20071010
  Serious: Yes (Hospitalization)
  Sender: FDA-Public Use
  Company Number: FR-PFIZER INC-2007031107

PATIENT
  Sex: Female
  Weight: 60 kg

DRUGS (4)
  1. SUTENT [Suspect]
     Indication: ADENOCARCINOMA
     Dates: end: 20061223
  2. NICARDIPINE HYDROCHLORIDE [Concomitant]
  3. ACEBUTOLOL HYDROCHLORIDE [Concomitant]
  4. LEVOTHYROXINE SODIUM [Concomitant]

REACTIONS (2)
  - PHLEBITIS [None]
  - PULMONARY EMBOLISM [None]
